FAERS Safety Report 21129241 (Version 1)
Quarter: 2022Q3

REPORT INFORMATION
  Report Type: Report from Study
  Country: US (occurrence: US)
  Receive Date: 20220725
  Receipt Date: 20220725
  Transmission Date: 20221027
  Serious: Yes (Other)
  Sender: FDA-Public Use
  Company Number: US-JAZZ-2022-US-013431

PATIENT
  Age: 54 Year
  Sex: Female

DRUGS (8)
  1. XYREM [Suspect]
     Active Substance: SODIUM OXYBATE
     Indication: Hypersomnia
     Dosage: 3.75 GRAM, BID
     Route: 048
  2. STRONTIUM MONOCITRATE [Suspect]
     Active Substance: STRONTIUM MONOCITRATE
     Indication: Product used for unknown indication
     Dosage: UNK
     Dates: start: 20220615
  3. SYNTHROID [Concomitant]
     Active Substance: LEVOTHYROXINE SODIUM
     Dosage: 75 MICROGRAM
     Dates: start: 20170822
  4. SYNTHROID [Concomitant]
     Active Substance: LEVOTHYROXINE SODIUM
     Dosage: 50 MICROGRAM
  5. MELAX [MELOXICAM] [Concomitant]
     Dosage: 0000
     Dates: start: 20180202
  6. VALACYCLOVIR HYDROCHLORIDE [Concomitant]
     Active Substance: VALACYCLOVIR HYDROCHLORIDE
     Dosage: 0010
     Dates: start: 20181122
  7. NAPROXEN [Concomitant]
     Active Substance: NAPROXEN
     Dosage: 0000
     Dates: start: 20220419
  8. VITAMINS [Concomitant]
     Active Substance: VITAMINS
     Indication: Product used for unknown indication
     Dosage: UNK
     Dates: start: 20220615

REACTIONS (4)
  - Neutropenia [Recovered/Resolved]
  - Osteoporosis [Unknown]
  - Back pain [Unknown]
  - Dyspepsia [Unknown]

NARRATIVE: CASE EVENT DATE: 20220601
